FAERS Safety Report 18986279 (Version 1)
Quarter: 2021Q1

REPORT INFORMATION
  Report Type: Spontaneous
  Country: US (occurrence: US)
  Receive Date: 20210308
  Receipt Date: 20210308
  Transmission Date: 20210420
  Serious: No
  Sender: FDA-Public Use
  Company Number: None

PATIENT

DRUGS (1)
  1. ETHYL RUBBING ALCOHOL [Suspect]
     Active Substance: ALCOHOL\ISOPROPYL ALCOHOL
     Indication: COVID-19 PROPHYLAXIS
     Dosage: ?          QUANTITY:16 OUNCE(S);?
     Route: 061
     Dates: start: 20201207, end: 20201210

REACTIONS (4)
  - Burning sensation [None]
  - Toxicity to various agents [None]
  - Product label confusion [None]
  - Product odour abnormal [None]

NARRATIVE: CASE EVENT DATE: 20201210
